FAERS Safety Report 24198501 (Version 1)
Quarter: 2024Q3

REPORT INFORMATION
  Report Type: Spontaneous
  Country: FR (occurrence: FR)
  Receive Date: 20240812
  Receipt Date: 20240812
  Transmission Date: 20241017
  Serious: Yes (Other)
  Sender: BOEHRINGER INGELHEIM
  Company Number: FR-BoehringerIngelheim-2024-BI-044260

PATIENT
  Age: 11 Year
  Sex: Female
  Weight: 33.9 kg

DRUGS (3)
  1. CLONIDINE [Suspect]
     Active Substance: CLONIDINE
     Indication: Muscle spasticity
     Dosage: GRADUAL INCREASE IN DOSAGE TO 0.5?G/KG/H
     Dates: start: 20240209
  2. CLONIDINE [Suspect]
     Active Substance: CLONIDINE
     Dosage: RELAY WITH GRADUAL INCREASE IN DOSAGE TO (MAGISTRAL PREPARATION)
     Route: 048
     Dates: start: 20240219
  3. CLONIDINE [Suspect]
     Active Substance: CLONIDINE
     Dates: start: 20240226, end: 20240226

REACTIONS (3)
  - Wrong dose [Recovered/Resolved]
  - Bradycardia [Recovered/Resolved]
  - Hypotension [Recovered/Resolved]

NARRATIVE: CASE EVENT DATE: 20240226
